FAERS Safety Report 11710230 (Version 2)
Quarter: 2015Q4

REPORT INFORMATION
  Report Type: Spontaneous
  Country: US (occurrence: US)
  Receive Date: 20151104
  Receipt Date: 20151110
  Transmission Date: 20160304
  Serious: No
  Sender: FDA-Public Use
  Company Number: US-ELI_LILLY_AND_COMPANY-US201102006694

PATIENT
  Age: 80 Year
  Sex: Female

DRUGS (2)
  1. FORTEO [Suspect]
     Active Substance: TERIPARATIDE
     Dosage: UNK, UNKNOWN
     Route: 065
  2. FORTEO [Suspect]
     Active Substance: TERIPARATIDE
     Indication: OSTEOPOROSIS
     Dosage: UNK, UNKNOWN
     Route: 065

REACTIONS (8)
  - Skin disorder [Unknown]
  - Arthralgia [Unknown]
  - Tooth infection [Unknown]
  - Tooth fracture [Unknown]
  - Tooth fracture [Unknown]
  - Accident [Unknown]
  - Hypertension [Unknown]
  - Limb injury [Unknown]

NARRATIVE: CASE EVENT DATE: 201105
